FAERS Safety Report 8347998-7 (Version None)
Quarter: 2012Q2

REPORT INFORMATION
  Report Type: 
  Country: None (occurrence: None)
  Receive Date: 20120509
  Receipt Date: 20120503
  Transmission Date: 20120825
  Serious: Yes (Other)
  Sender: FDA-Public Use
  Company Number: CA-JNJFOC-20120504869

PATIENT
  Sex: Female

DRUGS (1)
  1. SIMPONI [Suspect]
     Indication: RHEUMATOID ARTHRITIS
     Route: 058
     Dates: start: 20101124, end: 20120401

REACTIONS (3)
  - SKIN CANCER [None]
  - DERMATITIS PSORIASIFORM [None]
  - PRECANCEROUS SKIN LESION [None]
